FAERS Safety Report 18223272 (Version 1)
Quarter: 2020Q3

REPORT INFORMATION
  Report Type: Spontaneous
  Country: DE (occurrence: DE)
  Receive Date: 20200902
  Receipt Date: 20200902
  Transmission Date: 20201103
  Serious: Yes (Other)
  Sender: FDA-Public Use
  Company Number: DE-ELI_LILLY_AND_COMPANY-DE202008009455

PATIENT
  Age: 57 Year
  Sex: Female
  Weight: 79 kg

DRUGS (1)
  1. OLUMIANT [Suspect]
     Active Substance: BARICITINIB
     Indication: RHEUMATOID ARTHRITIS
     Dosage: 4 MG, UNKNOWN
     Route: 048
     Dates: end: 20200423

REACTIONS (1)
  - Venous thrombosis limb [Not Recovered/Not Resolved]

NARRATIVE: CASE EVENT DATE: 202004
